FAERS Safety Report 25046727 (Version 1)
Quarter: 2025Q1

REPORT INFORMATION
  Report Type: Spontaneous
  Country: US (occurrence: US)
  Receive Date: 20250306
  Receipt Date: 20250306
  Transmission Date: 20250409
  Serious: Yes (Hospitalization, Other)
  Sender: GLAXOSMITHKLINE
  Company Number: US-GSK-US2025024871

PATIENT
  Sex: Female

DRUGS (2)
  1. MOMELOTINIB [Suspect]
     Active Substance: MOMELOTINIB
     Indication: Myelofibrosis
  2. MOMELOTINIB [Suspect]
     Active Substance: MOMELOTINIB
     Dosage: 100 MG, QD

REACTIONS (1)
  - Thrombocytopenia [Unknown]
